FAERS Safety Report 6084453-1 (Version None)
Quarter: 2009Q1

REPORT INFORMATION
  Report Type: 
  Country: None (occurrence: None)
  Receive Date: 20090217
  Receipt Date: 20090210
  Transmission Date: 20090719
  Serious: Yes (Other)
  Sender: FDA-Public Use
  Company Number: 2009JP000513

PATIENT
  Age: 61 Year
  Sex: Female
  Weight: 52.7 kg

DRUGS (5)
  1. PROGRAF [Suspect]
     Indication: RHEUMATOID ARTHRITIS
     Dosage: 1.5 MG, UID/QD, ORAL
     Route: 048
     Dates: start: 20080416
  2. EVISTA [Suspect]
     Indication: OSTEOPOROSIS
     Dosage: 1 DF, UID/QD,ORAL
     Route: 048
     Dates: start: 20071120, end: 20090116
  3. MUCOSTA          (REBAMIPIDE) TABLET [Concomitant]
  4. METHYCOBAL    (MECOBALAMIN) TABLET [Concomitant]
  5. SELTOUCH            (FELBINAC) EXTERNAL [Concomitant]

REACTIONS (1)
  - RETINAL VEIN OCCLUSION [None]
